FAERS Safety Report 4659250-1 (Version None)
Quarter: 2005Q2

REPORT INFORMATION
  Report Type: 
  Country: None (occurrence: None)
  Receive Date: 20050510
  Receipt Date: 20050428
  Transmission Date: 20051028
  Serious: Yes (Hospitalization)
  Sender: FDA-Public Use
  Company Number: 2005-00343

PATIENT
  Age: 58 Year
  Sex: Female
  Weight: 56.2 kg

DRUGS (9)
  1. VELCADE [Suspect]
     Indication: SMALL CELL LUNG CANCER STAGE UNSPECIFIED
     Dosage: 2.00 MG, 2/WEEK, IV BOLUS
     Route: 040
     Dates: start: 20050117, end: 20050127
  2. INDERAL LA [Concomitant]
  3. ADVAIR (FLUTICASONE PROPIONATE, SALMETEROL XINAFOATE) POWDER (EXCEPT [ [Concomitant]
  4. PERCOCET [Concomitant]
  5. AMBIEN [Concomitant]
  6. ALBUTEROL [Concomitant]
  7. HYDROCHLOROTHIAZIDE [Concomitant]
  8. SINGULAIR [Concomitant]
  9. COMPAZINE [Concomitant]

REACTIONS (6)
  - CATHETER RELATED INFECTION [None]
  - DRUG ERUPTION [None]
  - HERPES ZOSTER [None]
  - NEUROPATHY [None]
  - PSEUDOMONAS INFECTION [None]
  - URTICARIA [None]
